FAERS Safety Report 6393117-6 (Version None)
Quarter: 2009Q4

REPORT INFORMATION
  Report Type: 
  Country: None (occurrence: None)
  Receive Date: 20091008
  Receipt Date: 20070807
  Transmission Date: 20100525
  Serious: Yes (Hospitalization, Other)
  Sender: FDA-Public Use
  Company Number: US-ASTRAZENECA-2006UW11506

PATIENT
  Age: 569 Month
  Sex: Male
  Weight: 72.9 kg

DRUGS (15)
  1. SEROQUEL [Suspect]
     Indication: ANXIETY
     Route: 048
     Dates: start: 20030101
  2. SEROQUEL [Suspect]
     Indication: DEPRESSION
     Route: 048
     Dates: start: 20030101
  3. SEROQUEL [Suspect]
     Dosage: 750 MG
     Route: 048
     Dates: start: 20030101, end: 20050101
  4. SEROQUEL [Suspect]
     Dosage: 750 MG
     Route: 048
     Dates: start: 20030101, end: 20050101
  5. HALDOL [Concomitant]
     Dates: start: 19950501, end: 19951101
  6. CAPTOPRIL [Concomitant]
     Dates: start: 20030101
  7. GLYBURIDE [Concomitant]
     Dates: start: 20030101
  8. ASPIRIN [Concomitant]
     Dosage: 81-325 MG
     Route: 048
     Dates: start: 20030101
  9. NITROGLYCERIN [Concomitant]
     Dosage: PRN
     Route: 060
     Dates: start: 20030101
  10. ATENOLOL [Concomitant]
     Indication: BLOOD PRESSURE
     Dosage: 25-50 MG
     Route: 048
     Dates: start: 20031213
  11. LIPITOR [Concomitant]
     Route: 048
     Dates: start: 20040101
  12. METFORMIN [Concomitant]
     Dates: start: 20040101
  13. VASOTEC [Concomitant]
     Route: 048
     Dates: start: 20040101
  14. DYAZIDE [Concomitant]
     Dates: start: 20040101
  15. GLIPIZIDE [Concomitant]
     Route: 048
     Dates: start: 20040101

REACTIONS (8)
  - BLOOD CHOLESTEROL INCREASED [None]
  - BLOOD TRIGLYCERIDES INCREASED [None]
  - CEREBROVASCULAR ACCIDENT [None]
  - DIABETES MELLITUS [None]
  - DYSLIPIDAEMIA [None]
  - HYPERLIPIDAEMIA [None]
  - PARALYSIS [None]
  - TYPE 2 DIABETES MELLITUS [None]
